FAERS Safety Report 9340949 (Version 2)
Quarter: 2013Q3

REPORT INFORMATION
  Report Type: Spontaneous
  Country: DE (occurrence: None)
  Receive Date: 20130603
  Receipt Date: 20130820
  Transmission Date: 20140515
  Serious: Yes (Other)
  Sender: FDA-Public Use
  Company Number: 2013036259

PATIENT
  Age: 17 Year
  Sex: Male

DRUGS (2)
  1. HIZENTRA (IMMUNOGLOBULIN HUMAN NORMAL) [Suspect]
     Indication: HUMORAL IMMUNE DEFECT
     Dosage: 6 G 1X/WEEK, INFUSION RATE: 30ML/HOUR
     Dates: start: 20130521, end: 20130521
  2. HIZENTRA (IMMUNOGLOBULIN HUMAN NORMAL) [Suspect]
     Indication: WISKOTT-ALDRICH SYNDROME
     Dosage: 6 G 1X/WEEK, INFUSION RATE: 30ML/HOUR
     Dates: start: 20130521, end: 20130521

REACTIONS (3)
  - Liver injury [None]
  - Transaminases increased [None]
  - Off label use [None]
